FAERS Safety Report 10053099 (Version 1)
Quarter: 2014Q2

REPORT INFORMATION
  Report Type: Spontaneous
  Country: US (occurrence: US)
  Receive Date: 20140402
  Receipt Date: 20140402
  Transmission Date: 20141212
  Serious: No
  Sender: FDA-Public Use
  Company Number: US-009507513-1404USA001111

PATIENT
  Age: 48 Year
  Sex: Male

DRUGS (6)
  1. ISENTRESS [Suspect]
     Indication: HIV INFECTION
     Dosage: UNK
  2. CRIXIVAN [Suspect]
     Dosage: UNK
  3. NORVIR [Suspect]
  4. TENOFOVIR [Suspect]
  5. MONOCLONAL ANTIBODY (UNSPECIFIED) [Suspect]
  6. ETRAVIRINE [Suspect]

REACTIONS (1)
  - No therapeutic response [Unknown]
